FAERS Safety Report 24317381 (Version 1)
Quarter: 2024Q3

REPORT INFORMATION
  Report Type: Spontaneous
  Country: US (occurrence: None)
  Receive Date: 20240913
  Receipt Date: 20240913
  Transmission Date: 20241017
  Serious: Yes (Death)
  Sender: Public
  Company Number: None

PATIENT
  Sex: Female

DRUGS (3)
  1. VENOFER [Suspect]
     Active Substance: IRON SUCROSE
     Indication: Malignant urinary tract neoplasm
     Dosage: 200MG  EVERYS14 DAYS IV?
     Route: 042
     Dates: start: 202408
  2. VENOFER [Suspect]
     Active Substance: IRON SUCROSE
     Indication: Renal cancer
  3. CABOMETYX [Concomitant]

REACTIONS (1)
  - Neoplasm malignant [None]
